FAERS Safety Report 8012847-3 (Version None)
Quarter: 2011Q4

REPORT INFORMATION
  Report Type: 
  Country: None (occurrence: None)
  Receive Date: 20111229
  Receipt Date: 20111223
  Transmission Date: 20120403
  Serious: Yes (Death)
  Sender: FDA-Public Use
  Company Number: US-CELGENEUS-163-21880-11123338

PATIENT
  Sex: Male

DRUGS (1)
  1. REVLIMID [Suspect]
     Dosage: 5 MILLIGRAM
     Route: 048
     Dates: start: 20111201, end: 20111201

REACTIONS (3)
  - ABDOMINAL PAIN UPPER [None]
  - PLATELET COUNT DECREASED [None]
  - DEATH [None]
